FAERS Safety Report 7227050-4 (Version None)
Quarter: 2011Q1

REPORT INFORMATION
  Report Type: 
  Country: None (occurrence: None)
  Receive Date: 20110114
  Receipt Date: 19970523
  Transmission Date: 20110831
  Serious: Yes (Other)
  Sender: FDA-Public Use
  Company Number: FR-ROCHE-59906

PATIENT

DRUGS (8)
  1. YELLOW FEVER VACCINE [Concomitant]
     Indication: PROPHYLAXIS
     Dates: start: 19960201
  2. PALUDRINE [Concomitant]
     Indication: MALARIA PROPHYLAXIS
     Dates: start: 19960315, end: 19960410
  3. TYPHIM VI [Concomitant]
     Indication: PROPHYLAXIS
     Dates: start: 19960201
  4. HEPATITIS B VACCINE [Concomitant]
     Dates: start: 19960220
  5. HAVRIX [Concomitant]
     Indication: PROPHYLAXIS
     Dates: start: 19960220
  6. DUPHASTON [Concomitant]
     Dates: start: 19960214, end: 19960214
  7. LARIAM [Suspect]
     Indication: MALARIA PROPHYLAXIS
     Route: 064
     Dates: start: 19960215, end: 19960307
  8. CHLOROQUINE PHOSPHATE [Concomitant]
     Indication: MALARIA PROPHYLAXIS
     Dates: start: 19960315, end: 19960410

REACTIONS (2)
  - DERMATITIS ATOPIC [None]
  - PREMATURE BABY [None]
